FAERS Safety Report 22730639 (Version 3)
Quarter: 2024Q3

REPORT INFORMATION
  Report Type: Spontaneous
  Country: US (occurrence: US)
  Receive Date: 20230720
  Receipt Date: 20240705
  Transmission Date: 20241016
  Serious: Yes (Hospitalization, Other)
  Sender: PFIZER
  Company Number: US-PFIZER INC-202300251624

PATIENT
  Age: 69 Year
  Sex: Female
  Weight: 61.23 kg

DRUGS (10)
  1. OXBRYTA [Suspect]
     Active Substance: VOXELOTOR
     Indication: Sickle cell anaemia
     Dosage: 500MG/3 TABLETS BY MOUTH ONCE DAILY
     Route: 048
  2. OXBRYTA [Suspect]
     Active Substance: VOXELOTOR
     Dosage: UNK
  3. MORPHINE [Concomitant]
     Active Substance: MORPHINE
     Indication: Breakthrough pain
     Dosage: 200 MG, 2X/DAY (100MG TWO BID TWICE A DAY)
  4. MORPHINE [Concomitant]
     Active Substance: MORPHINE
     Dosage: 30 MG (ALSO 1-2 EVERY 4 HOURS FOR BREAKTHROUGH PAIN)
  5. PERCOCET [Concomitant]
     Active Substance: ACETAMINOPHEN\OXYCODONE HYDROCHLORIDE
     Indication: Breakthrough pain
     Dosage: UNK (7.5/325 ONE-TWO EVERY 4 HOURS)
  6. ALPRAZOLAM [Concomitant]
     Active Substance: ALPRAZOLAM
     Dosage: UNK (0.25 ALPRAZOLAM 1 -2 AT NIGHT )
  7. PROMETHAZINE [Concomitant]
     Active Substance: PROMETHAZINE HYDROCHLORIDE
     Indication: Nausea
     Dosage: 25 MG, AS NEEDED (25MG 1-2 EVERY 6 HOURS)
  8. TRIAMCINOLONE ACETONIDE [Concomitant]
     Active Substance: TRIAMCINOLONE ACETONIDE
     Indication: Rash
     Dosage: UNK, 1X/DAY(AT NIGHT)
  9. HYDROXYUREA [Concomitant]
     Active Substance: HYDROXYUREA
     Indication: Sickle cell anaemia
     Dosage: 1500 MG, 1X/DAY(THREE 500MG ONCE A DAY)
  10. HYDROXYUREA [Concomitant]
     Active Substance: HYDROXYUREA
     Dosage: 500 MILLIGRAMS, TWO TO THREE A DAY

REACTIONS (3)
  - Haemoglobin decreased [Unknown]
  - Rash [Unknown]
  - Hepatic enzyme increased [Unknown]
